FAERS Safety Report 6047120-6 (Version None)
Quarter: 2009Q1

REPORT INFORMATION
  Report Type: 
  Country: None (occurrence: None)
  Receive Date: 20090122
  Receipt Date: 20090112
  Transmission Date: 20090719
  Serious: Yes (Other)
  Sender: FDA-Public Use
  Company Number: PHHY2009DE01191

PATIENT
  Sex: Female
  Weight: 75 kg

DRUGS (3)
  1. FEMARA [Suspect]
     Indication: BREAST CANCER
     Dosage: 2.5 MG, QD
     Route: 048
     Dates: start: 20070601
  2. EUGLUCON [Concomitant]
     Dosage: 3.5 MG, TID
     Dates: start: 20010101
  3. BRISERIN N [Concomitant]
     Dosage: UNK
     Dates: start: 20010101

REACTIONS (1)
  - RETINAL VASCULAR THROMBOSIS [None]
